FAERS Safety Report 11891653 (Version 1)
Quarter: 2016Q1

REPORT INFORMATION
  Report Type: Spontaneous
  Country: US (occurrence: None)
  Receive Date: 20160105
  Receipt Date: 20160105
  Transmission Date: 20160526
  Serious: Yes (Other)
  Sender: FDA-Public Use
  Company Number: None

PATIENT
  Age: 39 Year
  Sex: Female
  Weight: 77.11 kg

DRUGS (2)
  1. ULTRAM [Suspect]
     Active Substance: TRAMADOL HYDROCHLORIDE
     Indication: BACK PAIN
     Route: 048
     Dates: start: 20140115, end: 20151230
  2. ULTRAM [Suspect]
     Active Substance: TRAMADOL HYDROCHLORIDE
     Indication: SPINAL LAMINECTOMY
     Route: 048
     Dates: start: 20140115, end: 20151230

REACTIONS (9)
  - Gastroenteritis viral [None]
  - Vomiting [None]
  - Abdominal pain [None]
  - Diarrhoea [None]
  - Insomnia [None]
  - Dizziness [None]
  - Drug withdrawal syndrome [None]
  - Nausea [None]
  - Restless legs syndrome [None]

NARRATIVE: CASE EVENT DATE: 20160103
